FAERS Safety Report 21363189 (Version 1)
Quarter: 2022Q3

REPORT INFORMATION
  Report Type: Spontaneous
  Country: ES (occurrence: ES)
  Receive Date: 20220922
  Receipt Date: 20220922
  Transmission Date: 20221026
  Serious: Yes (Other)
  Sender: FDA-Public Use
  Company Number: None

PATIENT
  Age: 65 Year
  Sex: Female
  Weight: 56 kg

DRUGS (1)
  1. DOXORUBICIN HYDROCHLORIDE [Suspect]
     Active Substance: DOXORUBICIN HYDROCHLORIDE
     Indication: Neoplasm malignant
     Dosage: 36 MG/M2, CONCENTRATE FOR SOLUTION FOR INFUSION, ONE 10 ML VIAL
     Route: 042
     Dates: start: 20220727, end: 20220727

REACTIONS (4)
  - Oxygen saturation [Recovered/Resolved]
  - Vomiting [Recovered/Resolved]
  - Hypotension [Recovered/Resolved]
  - Flushing [Recovered/Resolved]

NARRATIVE: CASE EVENT DATE: 20220727
